FAERS Safety Report 15474884 (Version 2)
Quarter: 2018Q4

REPORT INFORMATION
  Report Type: Spontaneous
  Country: DK (occurrence: DK)
  Receive Date: 20181008
  Receipt Date: 20181016
  Transmission Date: 20190205
  Serious: Yes (Death, Life-Threatening, Hospitalization, Other)
  Sender: FDA-Public Use
  Company Number: DK-PURDUE-GBR-2018-0060110

PATIENT
  Age: 83 Year
  Sex: Male

DRUGS (8)
  1. DICLOFENAC [Interacting]
     Active Substance: DICLOFENAC
     Indication: BACK PAIN
     Dosage: UNK (RESCUE MEDICATION)
     Route: 048
  2. PARACETAMOL [Interacting]
     Active Substance: ACETAMINOPHEN
     Indication: BACK PAIN
     Dosage: 4 G, DAILY (4 G, QD)
     Route: 048
  3. WARFARIN SODIUM. [Interacting]
     Active Substance: WARFARIN SODIUM
     Indication: ATRIAL FIBRILLATION
     Dosage: 1 G, DAILY (TREATED WITH WARFARIN FOR SEVERAL YEARS)
     Route: 048
  4. MORPHINE SULFATE. [Suspect]
     Active Substance: MORPHINE SULFATE
     Indication: BACK PAIN
     Dosage: 30 MG, DAILY (30 MG, QD)
     Route: 048
  5. WARFARIN SODIUM. [Interacting]
     Active Substance: WARFARIN SODIUM
     Indication: ANTICOAGULANT THERAPY
     Dosage: TREATED WITH WARFARIN FOR SEVERAL YEARS
     Route: 048
  6. WARFARIN SODIUM. [Interacting]
     Active Substance: WARFARIN SODIUM
     Route: 048
  7. WARFARIN SODIUM. [Interacting]
     Active Substance: WARFARIN SODIUM
     Route: 065
  8. PARACETAMOL [Interacting]
     Active Substance: ACETAMINOPHEN
     Indication: PRODUCT USED FOR UNKNOWN INDICATION
     Dosage: 1 G, DAILY (1 G, QD)
     Route: 048

REACTIONS (13)
  - Nervous system disorder [Fatal]
  - Labelled drug-drug interaction medication error [Fatal]
  - Aphasia [Fatal]
  - Brain midline shift [Fatal]
  - Unresponsive to stimuli [Fatal]
  - International normalised ratio increased [Fatal]
  - Cerebral haemorrhage [Fatal]
  - Asthenia [Fatal]
  - Drug interaction [Fatal]
  - Hemiparesis [Fatal]
  - Hemianopia homonymous [Fatal]
  - Coma [Fatal]
  - Muscular weakness [Fatal]
